FAERS Safety Report 4870101-2 (Version None)
Quarter: 2005Q4

REPORT INFORMATION
  Report Type: 
  Country: None (occurrence: None)
  Receive Date: 20051229
  Receipt Date: 20051229
  Transmission Date: 20060501
  Serious: No
  Sender: FDA-Public Use
  Company Number: None

PATIENT
  Sex: Male
  Weight: 70.7611 kg

DRUGS (2)
  1. BACTRIM DS [Suspect]
     Indication: CYSTOSCOPY
     Dosage: SULFAMETH/TRIMETHOPRIM 800/160    TWICE DAILY  PO
     Route: 048
     Dates: start: 20051223, end: 20051223
  2. GATIFLOXACIN [Concomitant]

REACTIONS (1)
  - RASH [None]
